FAERS Safety Report 7812689-5 (Version None)
Quarter: 2011Q4

REPORT INFORMATION
  Report Type: 
  Country: None (occurrence: None)
  Receive Date: 20111013
  Receipt Date: 20110929
  Transmission Date: 20120403
  Serious: Yes (Other)
  Sender: FDA-Public Use
  Company Number: GB-ELI_LILLY_AND_COMPANY-GB201108001032

PATIENT
  Sex: Female
  Weight: 125.8 kg

DRUGS (14)
  1. CYMBALTA [Suspect]
     Indication: DEPRESSION
     Dosage: UNK, UNKNOWN
  2. ALBUTEROL [Concomitant]
  3. ANTACID [Concomitant]
  4. OXETACAINE [Concomitant]
  5. OXYCONTIN [Concomitant]
  6. DOCUSATE [Concomitant]
  7. CYMBALTA [Suspect]
     Dosage: 60 MG, BID
     Route: 033
     Dates: start: 20110801
  8. PREDNISOLONE [Concomitant]
  9. PARACETAMOL [Concomitant]
  10. METHYLPHENIDATE [Concomitant]
  11. OXYCODONE HCL [Concomitant]
  12. DIFFLAM [Concomitant]
  13. SENNA [Concomitant]
  14. HALOPERIDOL [Concomitant]

REACTIONS (3)
  - GASTROSTOMY TUBE INSERTION [None]
  - DEVICE OCCLUSION [None]
  - MEDICATION ERROR [None]
